FAERS Safety Report 8061489-2 (Version None)
Quarter: 2012Q1

REPORT INFORMATION
  Report Type: 
  Country: None (occurrence: None)
  Receive Date: 20120120
  Receipt Date: 20120112
  Transmission Date: 20120608
  Serious: Yes (Other)
  Sender: FDA-Public Use
  Company Number: US-ASTRAZENECA-2011SE62611

PATIENT
  Age: 58 Year
  Sex: Female
  Weight: 88.9 kg

DRUGS (7)
  1. SEROQUEL XR [Suspect]
     Indication: BIPOLAR DISORDER
     Route: 048
     Dates: start: 20110801
  2. SYNTHROID [Concomitant]
     Indication: THYROID DISORDER
     Route: 048
  3. CENTENAL PATCHES [Concomitant]
     Indication: INTERVERTEBRAL DISC PROTRUSION
     Dosage: 12 MG
     Route: 061
  4. CENTENAL PATCHES [Concomitant]
     Dosage: 25 MG
     Route: 061
  5. PROZAC [Concomitant]
     Indication: BIPOLAR DISORDER
     Route: 048
  6. ZETIA [Concomitant]
     Route: 048
  7. LOVASTATIN [Concomitant]
     Route: 048

REACTIONS (4)
  - ROAD TRAFFIC ACCIDENT [None]
  - LIMB INJURY [None]
  - PAIN IN EXTREMITY [None]
  - CONFUSIONAL STATE [None]
